FAERS Safety Report 7525080-6 (Version None)
Quarter: 2011Q2

REPORT INFORMATION
  Report Type: 
  Country: None (occurrence: None)
  Receive Date: 20110526
  Receipt Date: 20110513
  Transmission Date: 20111010
  Serious: Yes (Hospitalization)
  Sender: FDA-Public Use
  Company Number: 2011MA005879

PATIENT
  Age: 69 Year
  Sex: Female

DRUGS (1)
  1. CITALOPRAM HYDROBROMIDE [Suspect]

REACTIONS (9)
  - SYNCOPE [None]
  - HEADACHE [None]
  - DIZZINESS [None]
  - NAUSEA [None]
  - TREMOR [None]
  - INFLUENZA LIKE ILLNESS [None]
  - FALL [None]
  - SUBDURAL HAEMATOMA [None]
  - ANXIETY [None]
